FAERS Safety Report 19945870 (Version 1)
Quarter: 2021Q4

REPORT INFORMATION
  Report Type: Spontaneous
  Country: CN (occurrence: CN)
  Receive Date: 20211012
  Receipt Date: 20211012
  Transmission Date: 20220303
  Serious: Yes (Disabling)
  Sender: FDA-Public Use
  Company Number: CN-PFIZER INC-202101282222

PATIENT
  Age: 66 Year
  Sex: Female
  Weight: 69 kg

DRUGS (5)
  1. ZYVOX [Suspect]
     Active Substance: LINEZOLID
     Indication: Sepsis
     Dosage: 600 MG, 2X/DAY
     Route: 041
     Dates: start: 20210629, end: 20210708
  2. PIPERACILLIN SODIUM\TAZOBACTAM SODIUM [Suspect]
     Active Substance: PIPERACILLIN SODIUM\TAZOBACTAM SODIUM
     Indication: Sepsis
     Dosage: 4.5 G, 3X/DAY
     Route: 041
     Dates: start: 20210617, end: 20210702
  3. VANCOCIN [Suspect]
     Active Substance: VANCOMYCIN HYDROCHLORIDE
     Indication: Sepsis
     Dosage: 1 G, 2X/DAY
     Route: 041
     Dates: start: 20210619, end: 20210629
  4. SODIUM CHLORIDE [Concomitant]
     Active Substance: SODIUM CHLORIDE
     Indication: Vehicle solution use
     Dosage: 100 ML, 3X/DAY
     Route: 041
     Dates: start: 20210617, end: 20210702
  5. SODIUM CHLORIDE [Concomitant]
     Active Substance: SODIUM CHLORIDE
     Indication: Vehicle solution use
     Dosage: 250 ML, 2X/DAY
     Route: 041
     Dates: start: 20210619, end: 20210629

REACTIONS (1)
  - Renal impairment [Recovering/Resolving]

NARRATIVE: CASE EVENT DATE: 20210702
